FAERS Safety Report 8925947 (Version 1)
Quarter: 2012Q4

REPORT INFORMATION
  Report Type: 
  Country: BR (occurrence: BR)
  Receive Date: 20121126
  Receipt Date: 20121126
  Transmission Date: 20130627
  Serious: Yes (Death, Hospitalization, Other)
  Sender: FDA-Public Use
  Company Number: BR-BAYER-2012-119390

PATIENT
  Age: 67 Year
  Sex: Male
  Weight: 63 kg

DRUGS (7)
  1. NEXAVAR [Suspect]
     Indication: LIVER, CANCER OF
     Dosage: 400 mg, BID
     Route: 048
     Dates: start: 201208
  2. NEXAVAR [Suspect]
     Indication: LIVER, CANCER OF
     Dosage: 200 mg, BID
     Route: 048
     Dates: end: 2012
  3. GLIMEPIRIDE [Concomitant]
     Indication: DIABETES
     Dosage: 2 DF, QD
     Route: 048
  4. METFORMIN [Concomitant]
     Indication: DIABETES
     Dosage: 3 DF, QD
     Route: 048
  5. FUROSEMIDE [Concomitant]
     Indication: HYPERTENSION
     Dosage: 1 DF, OM
     Route: 048
  6. PROPRANOLOL [Concomitant]
     Indication: HYPERTENSION
     Dosage: 1 DF, QD
     Route: 048
  7. TIROXIN [Concomitant]
     Indication: DYSFUNCTION THYROID
     Dosage: 1 DF, QD
     Route: 048

REACTIONS (14)
  - Cardio-respiratory arrest [Fatal]
  - Shock [Fatal]
  - Hepatitis [Fatal]
  - Asthenia [Not Recovered/Not Resolved]
  - Vertigo [Not Recovered/Not Resolved]
  - Hepatic encephalopathy [Not Recovered/Not Resolved]
  - Memory impairment [Not Recovered/Not Resolved]
  - Weight decreased [Not Recovered/Not Resolved]
  - Coordination abnormal [Not Recovered/Not Resolved]
  - Speech disorder [Not Recovered/Not Resolved]
  - Gastrointestinal haemorrhage [Recovering/Resolving]
  - Coma [Recovering/Resolving]
  - Oesophageal haemorrhage [Not Recovered/Not Resolved]
  - Haematemesis [Not Recovered/Not Resolved]
